FAERS Safety Report 13985391 (Version 1)
Quarter: 2017Q3

REPORT INFORMATION
  Report Type: Spontaneous
  Country: US (occurrence: None)
  Receive Date: 20170918
  Receipt Date: 20170918
  Transmission Date: 20171128
  Serious: Yes (Hospitalization, Other)
  Sender: FDA-Public Use
  Company Number: None

PATIENT
  Sex: Female

DRUGS (2)
  1. PROCRIT [Suspect]
     Active Substance: ERYTHROPOIETIN
     Indication: PRODUCT USED FOR UNKNOWN INDICATION
     Dosage: 5,000 UNITS TOTAL Q 2 WEEKS SUB-Q
     Route: 058
     Dates: start: 20161221, end: 201708
  2. PROCRIT [Suspect]
     Active Substance: ERYTHROPOIETIN
     Indication: PRODUCT USED FOR UNKNOWN INDICATION
     Dosage: 5,000 UNITS TOTAL Q 2 WEEKS SUB-Q
     Route: 058
     Dates: start: 20161221, end: 201708

REACTIONS (2)
  - Renal mass [None]
  - Therapy cessation [None]
